FAERS Safety Report 9632624 (Version 3)
Quarter: 2014Q1

REPORT INFORMATION
  Report Type: Spontaneous
  Country: US (occurrence: US)
  Receive Date: 20131018
  Receipt Date: 20140219
  Transmission Date: 20141002
  Serious: Yes (Death, Other)
  Sender: FDA-Public Use
  Company Number: US-GLAXOSMITHKLINE-A1045750A

PATIENT
  Age: 24 Year
  Sex: Female
  Weight: 85.5 kg

DRUGS (2)
  1. LAMICTAL XR [Suspect]
     Indication: CONVULSION
     Dosage: 550MG PER DAY
     Route: 048
     Dates: start: 2012
  2. VIMPAT [Suspect]
     Indication: CONVULSION
     Dosage: 550MG PER DAY
     Route: 048

REACTIONS (14)
  - Cardiac arrest [Fatal]
  - Grand mal convulsion [Fatal]
  - Unresponsive to stimuli [Unknown]
  - Resuscitation [Unknown]
  - Cardioversion [Unknown]
  - Mechanical ventilation [Unknown]
  - Convulsion [Unknown]
  - Loss of consciousness [Unknown]
  - Weight increased [Unknown]
  - Weight decreased [Unknown]
  - Aura [Unknown]
  - Extubation [Unknown]
  - Drug ineffective [Fatal]
  - Sudden unexplained death in epilepsy [Fatal]
